FAERS Safety Report 20905144 (Version 1)
Quarter: 2022Q2

REPORT INFORMATION
  Report Type: Spontaneous
  Country: CN (occurrence: CN)
  Receive Date: 20220602
  Receipt Date: 20220602
  Transmission Date: 20220721
  Serious: Yes (Hospitalization, Other)
  Sender: FDA-Public Use
  Company Number: CN-BAXTER-2022BAX010569

PATIENT
  Age: 62 Year
  Sex: Female

DRUGS (4)
  1. DOXORUBICIN [Suspect]
     Active Substance: DOXORUBICIN
     Indication: T-cell lymphoma
     Dosage: 60 MG
     Route: 042
     Dates: start: 20170815, end: 20170815
  2. DEXTROSE [Concomitant]
     Active Substance: DEXTROSE
     Indication: T-cell lymphoma
     Dosage: STARTING FROM 10 TO 12DROPS/MIN FOR OVER 1H.30 MINS BEFORE ADMINISTRATION (250 ML)
     Route: 041
  3. DEXAMETHASONE [Concomitant]
     Active Substance: DEXAMETHASONE
     Indication: T-cell lymphoma
     Dosage: 5 MG
     Route: 042
     Dates: start: 20170815
  4. PROMETHAZINE [Concomitant]
     Active Substance: PROMETHAZINE HYDROCHLORIDE
     Indication: T-cell lymphoma
     Dosage: 25 ML
     Route: 030
     Dates: start: 20170815

REACTIONS (1)
  - Anaphylactic shock [Recovered/Resolved]

NARRATIVE: CASE EVENT DATE: 20170815
